FAERS Safety Report 10841100 (Version 1)
Quarter: 2015Q1

REPORT INFORMATION
  Report Type: Spontaneous
  Country: US (occurrence: None)
  Receive Date: 20150218
  Receipt Date: 20150218
  Transmission Date: 20150721
  Serious: No
  Sender: FDA-Public Use
  Company Number: None

PATIENT
  Age: 55 Year
  Sex: Female

DRUGS (16)
  1. AMPYRA [Concomitant]
     Active Substance: DALFAMPRIDINE
  2. RESTORIL [Concomitant]
     Active Substance: TEMAZEPAM
  3. AMPYRA [Suspect]
     Active Substance: DALFAMPRIDINE
     Indication: MULTIPLE SCLEROSIS
     Route: 048
     Dates: start: 201211, end: 201405
  4. SOLU-MEDROL [Concomitant]
     Active Substance: METHYLPREDNISOLONE SODIUM SUCCINATE
  5. RITUXAN [Concomitant]
     Active Substance: RITUXIMAB
  6. IMIPRAMINE [Concomitant]
     Active Substance: IMIPRAMINE
  7. PEPCID [Concomitant]
     Active Substance: FAMOTIDINE
  8. MACRODANTIN [Concomitant]
     Active Substance: NITROFURANTOIN
  9. DOCUSATE SODIUM. [Concomitant]
     Active Substance: DOCUSATE SODIUM
  10. BENADRYL [Concomitant]
     Active Substance: DIPHENHYDRAMINE HYDROCHLORIDE
  11. NAPROXEN. [Concomitant]
     Active Substance: NAPROXEN
  12. TYLENOL [Concomitant]
     Active Substance: ACETAMINOPHEN
  13. ZOVIRAX [Concomitant]
     Active Substance: ACYCLOVIR
  14. ROBAXIN [Concomitant]
     Active Substance: METHOCARBAMOL
  15. MAXZIDE [Concomitant]
     Active Substance: HYDROCHLOROTHIAZIDE\TRIAMTERENE
  16. VITAMIN D [Concomitant]
     Active Substance: CHOLECALCIFEROL

REACTIONS (2)
  - Gait spastic [None]
  - Drug ineffective [None]

NARRATIVE: CASE EVENT DATE: 20140702
